FAERS Safety Report 10964225 (Version 2)
Quarter: 2015Q2

REPORT INFORMATION
  Report Type: Spontaneous
  Country: US (occurrence: US)
  Receive Date: 20150329
  Receipt Date: 20150524
  Transmission Date: 20150821
  Serious: No
  Sender: FDA-Public Use
  Company Number: US-JNJFOC-20131203275

PATIENT
  Age: 71 Year
  Sex: Female
  Weight: 49.9 kg

DRUGS (1)
  1. FENTANYL TRANSDERMAL SYSTEM [Suspect]
     Active Substance: FENTANYL
     Indication: PRODUCT USED FOR UNKNOWN INDICATION
     Route: 062
     Dates: start: 201311

REACTIONS (2)
  - Product quality issue [Unknown]
  - Adverse event [Unknown]

NARRATIVE: CASE EVENT DATE: 20131204
